FAERS Safety Report 17799888 (Version 1)
Quarter: 2020Q2

REPORT INFORMATION
  Report Type: Spontaneous
  Country: JP (occurrence: JP)
  Receive Date: 20200518
  Receipt Date: 20200518
  Transmission Date: 20200714
  Serious: Yes (Other)
  Sender: FDA-Public Use
  Company Number: JP-NAPPMUNDI-GBR-2020-0076686

PATIENT
  Age: 52 Year
  Sex: Female
  Weight: 57 kg

DRUGS (2)
  1. BUDESONIDE W/FORMOTEROL FUMARATE [Suspect]
     Active Substance: BUDESONIDE\FORMOTEROL FUMARATE
     Indication: ASTHMA
     Dosage: UNK
     Route: 055
  2. THEOPHYLLINE [Suspect]
     Active Substance: THEOPHYLLINE ANHYDROUS
     Indication: ASTHMA
     Dosage: UNK
     Route: 048

REACTIONS (8)
  - Polyglandular autoimmune syndrome type II [Unknown]
  - Autoimmune hepatitis [Unknown]
  - Thymoma [Recovered/Resolved]
  - Autoimmune thyroiditis [Unknown]
  - Glucocorticoid deficiency [Recovering/Resolving]
  - Ocular myasthenia [Recovered/Resolved]
  - Hypotension [Unknown]
  - Primary adrenal insufficiency [Recovering/Resolving]
